FAERS Safety Report 5618655-2 (Version None)
Quarter: 2008Q1

REPORT INFORMATION
  Report Type: 
  Country: None (occurrence: None)
  Receive Date: 20080207
  Receipt Date: 20080121
  Transmission Date: 20080703
  Serious: Yes (Other)
  Sender: FDA-Public Use
  Company Number: US-JNJFOC-20071101546

PATIENT
  Sex: Male
  Weight: 92.53 kg

DRUGS (12)
  1. LEVAQUIN [Suspect]
     Route: 048
  2. LEVAQUIN [Suspect]
     Indication: CHRONIC SINUSITIS
     Route: 048
  3. LEVAQUIN [Suspect]
     Indication: COUGH
     Route: 048
  4. LEVAQUIN [Suspect]
     Indication: PYREXIA
     Route: 048
  5. KALETRA [Concomitant]
     Indication: HIV INFECTION
     Route: 048
  6. DIDANOSINE [Concomitant]
     Indication: HIV INFECTION
     Route: 048
  7. ZIAGEN [Concomitant]
     Indication: HIV INFECTION
     Route: 048
  8. ACYCLOVIR [Concomitant]
     Indication: HERPES ZOSTER
     Route: 048
  9. MS CONTIN [Concomitant]
     Indication: PAIN
     Route: 048
  10. NEURONTIN [Concomitant]
     Indication: NEUROPATHY PERIPHERAL
     Route: 065
  11. CLINDOMYCIN [Concomitant]
     Indication: SINUSITIS
     Route: 048
  12. PREDNISOLONE ACETATE [Concomitant]
     Route: 031

REACTIONS (15)
  - ANOREXIA [None]
  - BURNING SENSATION [None]
  - FLUID INTAKE REDUCED [None]
  - GALLBLADDER ENLARGEMENT [None]
  - HEPATIC CIRRHOSIS [None]
  - HEPATOMEGALY [None]
  - HYPOAESTHESIA [None]
  - JOINT CREPITATION [None]
  - JOINT INJURY [None]
  - MUSCULAR WEAKNESS [None]
  - PAIN IN EXTREMITY [None]
  - PAIN OF SKIN [None]
  - PYREXIA [None]
  - SKIN DISCOLOURATION [None]
  - URTICARIA [None]
